FAERS Safety Report 17941365 (Version 3)
Quarter: 2022Q1

REPORT INFORMATION
  Report Type: Spontaneous
  Country: US (occurrence: US)
  Receive Date: 20200625
  Receipt Date: 20220209
  Transmission Date: 20220424
  Serious: No
  Sender: FDA-Public Use
  Company Number: None

PATIENT
  Age: 58 Year
  Sex: Female

DRUGS (1)
  1. DUPIXENT [Suspect]
     Active Substance: DUPILUMAB
     Indication: Eczema
     Dosage: 300 MG, OTHER
     Route: 058
     Dates: start: 202004, end: 202006

REACTIONS (2)
  - Injection site pain [Unknown]
  - Pain [Unknown]

NARRATIVE: CASE EVENT DATE: 20200616
